FAERS Safety Report 13666265 (Version 1)
Quarter: 2017Q2

REPORT INFORMATION
  Report Type: Spontaneous
  Country: US (occurrence: US)
  Receive Date: 20170619
  Receipt Date: 20170619
  Transmission Date: 20170830
  Serious: Yes (Other)
  Sender: FDA-Public Use
  Company Number: US-ROCHE-683913

PATIENT
  Age: 59 Year
  Sex: Female
  Weight: 58.5 kg

DRUGS (4)
  1. XELODA [Suspect]
     Active Substance: CAPECITABINE
     Indication: BREAST CANCER STAGE IV
     Route: 048
  2. XELODA [Suspect]
     Active Substance: CAPECITABINE
     Dosage: REGIMEN:2 WEEKS ON AND 2 WEEKS OFF
     Route: 048
  3. ATIVAN [Concomitant]
     Active Substance: LORAZEPAM
     Route: 065
  4. TYKERB [Concomitant]
     Active Substance: LAPATINIB DITOSYLATE
     Route: 065

REACTIONS (3)
  - Vomiting [Unknown]
  - Diarrhoea [Recovered/Resolved]
  - Dactylitis [Unknown]

NARRATIVE: CASE EVENT DATE: 20100128
